FAERS Safety Report 5192219-X (Version None)
Quarter: 2006Q4

REPORT INFORMATION
  Report Type: 
  Country: None (occurrence: None)
  Receive Date: 20061220
  Receipt Date: 20061214
  Transmission Date: 20070319
  Serious: Yes (Death)
  Sender: FDA-Public Use
  Company Number: 2006153437

PATIENT
  Age: 50 Year
  Sex: Male

DRUGS (4)
  1. VIAGRA [Suspect]
     Indication: ERECTILE DYSFUNCTION
     Dosage: 1-2 TABLETS (25 MG), ORAL
     Route: 048
     Dates: end: 20061116
  2. LITHIONIT                     (LITHIUM SULFATE) [Concomitant]
  3. CISORDINOL                            (CLOPENTHIXOL HYDROCHLORIDE) [Concomitant]
  4. AKINETON [Concomitant]

REACTIONS (1)
  - DEATH [None]
